FAERS Safety Report 8610818-7 (Version None)
Quarter: 2012Q3

REPORT INFORMATION
  Report Type: 
  Country: None (occurrence: None)
  Receive Date: 20120808
  Receipt Date: 20120724
  Transmission Date: 20120928
  Serious: Yes (Other)
  Sender: FDA-Public Use
  Company Number: 2012-002661

PATIENT
  Age: 85 Year

DRUGS (4)
  1. ACTONEL [Suspect]
     Indication: OSTEOPOROSIS
     Dosage: 35 MG ONCE WEEKLY, ORAL
     Route: 048
  2. VITAMIN D [Concomitant]
  3. CALCIUM CARBONATE [Concomitant]
  4. PREDNISONE TAB [Concomitant]

REACTIONS (6)
  - FEMUR FRACTURE [None]
  - PATHOLOGICAL FRACTURE [None]
  - EXOSTOSIS [None]
  - GAIT DISTURBANCE [None]
  - PAIN IN EXTREMITY [None]
  - FALL [None]
